FAERS Safety Report 6387931-0 (Version None)
Quarter: 2009Q4

REPORT INFORMATION
  Report Type: 
  Country: None (occurrence: None)
  Receive Date: 20091005
  Receipt Date: 20090923
  Transmission Date: 20100525
  Serious: Yes (Hospitalization)
  Sender: FDA-Public Use
  Company Number: US-AMGEN-US361214

PATIENT
  Sex: Male
  Weight: 81.3 kg

DRUGS (5)
  1. NEUPOGEN [Suspect]
     Indication: PERIPHERAL BLOOD STEM CELL APHERESIS
     Route: 058
     Dates: start: 20090716, end: 20090720
  2. LEVOTHROID [Concomitant]
     Route: 048
  3. VITAMIN D [Concomitant]
     Route: 048
  4. BETAMETHASONE DIPROPIONATE [Concomitant]
     Route: 061
  5. TRIAMCINOLONE ACETONIDE [Concomitant]
     Route: 061

REACTIONS (5)
  - EAR PAIN [None]
  - HEADACHE [None]
  - INFLAMMATION [None]
  - NECK PAIN [None]
  - ODYNOPHAGIA [None]
